FAERS Safety Report 10535193 (Version 1)
Quarter: 2014Q4

REPORT INFORMATION
  Report Type: Spontaneous
  Country: FR (occurrence: FR)
  Receive Date: 20141022
  Receipt Date: 20141022
  Transmission Date: 20150529
  Serious: Yes (Hospitalization)
  Sender: FDA-Public Use
  Company Number: FR-PFIZER INC-2014283884

PATIENT
  Age: 73 Year
  Sex: Male

DRUGS (21)
  1. ZYVOXID [Suspect]
     Active Substance: LINEZOLID
     Dosage: 600 MG, 1X/DAY
     Route: 048
     Dates: start: 20140814, end: 20140819
  2. TRIATEC [Concomitant]
     Active Substance: RAMIPRIL
     Dosage: 5 MG, DAILY
  3. DESLORATADINE. [Suspect]
     Active Substance: DESLORATADINE
     Dosage: 5 MG, 1X/DAY
     Route: 048
     Dates: start: 20140814, end: 20140902
  4. CRESTOR [Concomitant]
     Active Substance: ROSUVASTATIN CALCIUM
     Dosage: 20 MG, DAILY
     Route: 048
  5. LEVOTHYROX [Concomitant]
     Active Substance: LEVOTHYROXINE
     Dosage: 25 UG, DAILY
  6. OFLOXACIN. [Concomitant]
     Active Substance: OFLOXACIN
     Dosage: 200 MG, DAILY
     Route: 048
     Dates: start: 20140828, end: 20140922
  7. LASILIX [Concomitant]
     Active Substance: FUROSEMIDE
     Dosage: 250 MG IN THE MORNING AND 40 MG AT NOON DAILY IF NEEDED
     Route: 048
  8. OFLOXACIN. [Concomitant]
     Active Substance: OFLOXACIN
     Indication: STAPHYLOCOCCAL BACTERAEMIA
     Dosage: 200 MG, DAILY
     Route: 048
     Dates: start: 20140813, end: 20140819
  9. NEFOPAM [Concomitant]
     Active Substance: NEFOPAM
     Dosage: UNK
     Route: 048
     Dates: start: 20140816, end: 20140902
  10. ZYVOXID [Suspect]
     Active Substance: LINEZOLID
     Dosage: 600 MG, 2X/DAY
     Route: 048
     Dates: start: 20140820, end: 20140827
  11. NOVORAPID [Concomitant]
     Active Substance: INSULIN ASPART
  12. BISOPROLOL [Concomitant]
     Active Substance: BISOPROLOL
     Dosage: 10 MG, DAILY
  13. MODOPAR [Concomitant]
     Active Substance: BENSERAZIDE HYDROCHLORIDE\LEVODOPA
     Dosage: 375 MG IN THE MORNING AND 125 MG IN THE EVENING
  14. REPAGLINIDE. [Concomitant]
     Active Substance: REPAGLINIDE
     Dosage: 6 MG, DAILY
  15. LAMALINE [Concomitant]
     Active Substance: ACETAMINOPHEN\CAFFEINE\OPIUM
  16. ZYVOXID [Suspect]
     Active Substance: LINEZOLID
     Indication: STAPHYLOCOCCAL BACTERAEMIA
     Dosage: 600 MG, 2X/DAY
     Route: 048
     Dates: start: 20140813, end: 20140813
  17. ZYVOXID [Suspect]
     Active Substance: LINEZOLID
     Dosage: 600 MG, 1X/DAY
     Route: 048
     Dates: start: 20140828, end: 20140901
  18. OFLOXACIN. [Concomitant]
     Active Substance: OFLOXACIN
     Dosage: 400 MG, DAILY
     Route: 048
     Dates: start: 20140820, end: 20140827
  19. COUMADINE [Concomitant]
     Active Substance: WARFARIN SODIUM
     Dosage: 5 MG, DAILY
     Route: 048
  20. ALDACTONE [Concomitant]
     Active Substance: SPIRONOLACTONE
     Dosage: 50 MG, DAILY
  21. LEVEMIR [Concomitant]
     Active Substance: INSULIN DETEMIR

REACTIONS (3)
  - Delusion [Recovered/Resolved]
  - Confusional state [Recovered/Resolved]
  - Thrombocytopenia [Recovered/Resolved]

NARRATIVE: CASE EVENT DATE: 20140828
